FAERS Safety Report 9455411 (Version 2)
Quarter: 2013Q3

REPORT INFORMATION
  Report Type: Report from Study
  Country: NL (occurrence: NL)
  Receive Date: 20130813
  Receipt Date: 20130927
  Transmission Date: 20140515
  Serious: Yes (Hospitalization, Other)
  Sender: FDA-Public Use
  Company Number: PHHY2013NL086597

PATIENT
  Sex: Female

DRUGS (4)
  1. ZOMETA [Suspect]
     Indication: BREAST CANCER METASTATIC
     Dosage: 4 MG PER 100 ML, ONCE EVERY 4 WEEKS
     Route: 042
  2. ZOMETA [Suspect]
     Dosage: 4 MG PER 100 ML, ONCE EVERY 4 WEEKS
     Route: 042
     Dates: start: 20110621
  3. ZOMETA [Suspect]
     Dosage: 4 MG PER 100 ML, ONCE EVERY 4 WEEKS
     Route: 042
     Dates: start: 20130607
  4. ZOMETA [Suspect]
     Dosage: 4 MG PER 100 ML, ONCE EVERY 4 WEEKS
     Route: 042
     Dates: start: 20130704

REACTIONS (1)
  - Terminal state [Unknown]
